FAERS Safety Report 8731418 (Version 3)
Quarter: 2012Q4

REPORT INFORMATION
  Report Type: Report from Study
  Country: AU (occurrence: AU)
  Receive Date: 20120820
  Receipt Date: 20121219
  Transmission Date: 20130627
  Serious: Yes (Hospitalization)
  Sender: FDA-Public Use
  Company Number: AU-JNJFOC-20120708658

PATIENT
  Age: 59 Year
  Sex: Female
  Weight: 49.9 kg

DRUGS (15)
  1. GOLIMUMAB [Suspect]
     Indication: COLITIS ULCERATIVE
     Route: 058
     Dates: start: 20120807
  2. GOLIMUMAB [Suspect]
     Indication: COLITIS ULCERATIVE
     Route: 058
     Dates: start: 20120710
  3. GOLIMUMAB [Suspect]
     Indication: COLITIS ULCERATIVE
     Route: 058
     Dates: start: 20090805
  4. GOLIMUMAB [Suspect]
     Indication: COLITIS ULCERATIVE
     Route: 058
     Dates: start: 20120508
  5. SALAZOPYRIN [Concomitant]
     Route: 048
     Dates: start: 20091223
  6. PREMIA [Concomitant]
     Route: 048
     Dates: start: 20100327
  7. CEPHALEXIN [Concomitant]
     Route: 048
     Dates: start: 20100624
  8. ELOCON [Concomitant]
     Route: 061
     Dates: start: 20110525
  9. ADVANTAN [Concomitant]
     Route: 061
     Dates: start: 20110325
  10. ANTROQUORIL [Concomitant]
     Dates: start: 20111109
  11. AVAMYS [Concomitant]
     Route: 045
     Dates: start: 20120216
  12. TRICORTONE [Concomitant]
     Route: 061
     Dates: start: 20120227
  13. PHENERGAN [Concomitant]
     Indication: RASH
     Route: 061
     Dates: start: 20120309
  14. HYDROCORTISONE [Concomitant]
     Indication: EYE INFLAMMATION
     Route: 047
     Dates: start: 20120507
  15. HYDROCORTISONE [Concomitant]
     Route: 061
     Dates: start: 20101014

REACTIONS (2)
  - Sinusitis [Recovered/Resolved]
  - Otitis media [Recovered/Resolved]
